FAERS Safety Report 5619103-9 (Version None)
Quarter: 2008Q1

REPORT INFORMATION
  Report Type: 
  Country: None (occurrence: None)
  Receive Date: 20080207
  Receipt Date: 20080131
  Transmission Date: 20080703
  Serious: Yes (Other)
  Sender: FDA-Public Use
  Company Number: FR-PFIZER INC-2008010512

PATIENT
  Age: 57 Year
  Sex: Female

DRUGS (5)
  1. LYRICA [Suspect]
     Indication: NEURALGIA
  2. HUMALOG [Concomitant]
  3. IXEL [Concomitant]
  4. LAMALINE (FRANCE) [Concomitant]
  5. DIOSMINE [Concomitant]

REACTIONS (1)
  - CYTOLYTIC HEPATITIS [None]
